FAERS Safety Report 18792162 (Version 1)
Quarter: 2021Q1

REPORT INFORMATION
  Report Type: Spontaneous
  Country: CA (occurrence: CA)
  Receive Date: 20210127
  Receipt Date: 20210127
  Transmission Date: 20210419
  Serious: Yes (Other)
  Sender: FDA-Public Use
  Company Number: CA-TEVA-2021-CA-1871226

PATIENT
  Age: 62 Year
  Sex: Male

DRUGS (11)
  1. OXALIPLATIN INJECTION 50MG/10ML + 100MG/20ML SINGLE USE VIALS [Suspect]
     Active Substance: OXALIPLATIN
     Indication: RECTAL CANCER
     Route: 042
  2. FLUOROURACIL. [Concomitant]
     Active Substance: FLUOROURACIL
  3. POLYETHYLENE GLYCOL [Concomitant]
     Active Substance: POLYETHYLENE GLYCOLS
  4. TAMSULOSIN [Concomitant]
     Active Substance: TAMSULOSIN
  5. MAGNESIUM CITRATE. [Concomitant]
     Active Substance: MAGNESIUM CITRATE
  6. SENNOSIDES. [Concomitant]
     Active Substance: SENNOSIDES
  7. NIACIN. [Concomitant]
     Active Substance: NIACIN
  8. LEUCOVORIN. [Concomitant]
     Active Substance: LEUCOVORIN
  9. LOPERAMIDE [Concomitant]
     Active Substance: LOPERAMIDE
  10. RABEPRAZOLE [Concomitant]
     Active Substance: RABEPRAZOLE
  11. VITAMIN B12 [Concomitant]
     Active Substance: CYANOCOBALAMIN

REACTIONS (7)
  - Feeling hot [Recovered/Resolved]
  - Flushing [Recovered/Resolved]
  - Infusion related reaction [Recovered/Resolved]
  - Throat irritation [Recovered/Resolved]
  - Ocular discomfort [Recovered/Resolved]
  - Anorectal discomfort [Recovered/Resolved]
  - Oral dysaesthesia [Recovered/Resolved]
